FAERS Safety Report 5416925-4 (Version None)
Quarter: 2007Q3

REPORT INFORMATION
  Report Type: 
  Country: None (occurrence: None)
  Receive Date: 20070816
  Receipt Date: 20070706
  Transmission Date: 20080115
  Serious: Yes (Other)
  Sender: FDA-Public Use
  Company Number: FR-PFIZER INC-2007032975

PATIENT
  Sex: Male
  Weight: 63 kg

DRUGS (6)
  1. VFEND [Suspect]
     Indication: OROPHARYNGEAL CANDIDIASIS
     Dosage: DAILY DOSE:400MG
     Route: 048
     Dates: start: 20031017, end: 20040625
  2. VFEND [Suspect]
     Dates: start: 20041209, end: 20050801
  3. VFEND [Suspect]
     Dates: start: 20050901, end: 20051101
  4. BACTRIM DS [Concomitant]
     Route: 048
  5. VALGANCICLOVIR HCL [Concomitant]
     Dosage: DAILY DOSE:2MG
     Route: 048
  6. AZADOSE [Concomitant]
     Route: 048

REACTIONS (2)
  - PHOTOSENSITIVITY REACTION [None]
  - SQUAMOUS CELL CARCINOMA [None]
